FAERS Safety Report 7354045-2 (Version None)
Quarter: 2011Q1

REPORT INFORMATION
  Report Type: 
  Country: None (occurrence: None)
  Receive Date: 20110315
  Receipt Date: 20110309
  Transmission Date: 20110831
  Serious: Yes (Life-Threatening, Hospitalization, Other)
  Sender: FDA-Public Use
  Company Number: PHHY2011FR20036

PATIENT
  Sex: Male

DRUGS (8)
  1. IMOVANE [Concomitant]
     Dosage: 7.5 MG, QD
     Dates: start: 20040101
  2. LEPONEX [Suspect]
     Indication: SCHIZOPHRENIA
     Dosage: 500 MG, DAILY
     Dates: start: 20040101
  3. KARDEGIC [Concomitant]
  4. TRIATEC [Concomitant]
  5. DEPAMIDE [Concomitant]
     Dosage: 900 MG, DAILY
     Dates: start: 20040101
  6. TRANXENE [Concomitant]
  7. TRIMEPRAZINE TARTRATE [Concomitant]
  8. TRANSIPEG [Concomitant]

REACTIONS (13)
  - HEPATIC PAIN [None]
  - PULMONARY ARTERIAL HYPERTENSION [None]
  - FLUID OVERLOAD [None]
  - EJECTION FRACTION DECREASED [None]
  - LUNG DISORDER [None]
  - CARDIOMYOPATHY [None]
  - PSYCHOTIC DISORDER [None]
  - AORTIC VALVE INCOMPETENCE [None]
  - CARDIAC FAILURE [None]
  - HEPATOJUGULAR REFLUX [None]
  - OEDEMA [None]
  - BUNDLE BRANCH BLOCK LEFT [None]
  - MITRAL VALVE INCOMPETENCE [None]
